FAERS Safety Report 12253623 (Version 2)
Quarter: 2017Q2

REPORT INFORMATION
  Report Type: Spontaneous
  Country: US (occurrence: US)
  Receive Date: 20160411
  Receipt Date: 20170406
  Transmission Date: 20170830
  Serious: Yes (Other)
  Sender: FDA-Public Use
  Company Number: US-TEVA-651061ACC

PATIENT
  Sex: Female

DRUGS (1)
  1. TAKE ACTION [Suspect]
     Active Substance: LEVONORGESTREL
     Indication: POST COITAL CONTRACEPTION

REACTIONS (5)
  - Placental disorder [Unknown]
  - Pregnancy after post coital contraception [Unknown]
  - Drug ineffective [Unknown]
  - Hypertension [Unknown]
  - Normal newborn [Unknown]
